FAERS Safety Report 22111288 (Version 1)
Quarter: 2023Q1

REPORT INFORMATION
  Report Type: Spontaneous
  Country: US (occurrence: US)
  Receive Date: 20230317
  Receipt Date: 20230317
  Transmission Date: 20230418
  Serious: No
  Sender: FDA-Public Use
  Company Number: US-GALDERMA-US2023002762

PATIENT

DRUGS (3)
  1. PROACTIV MD ADAPALENE ACNE TREATMENT [Suspect]
     Active Substance: ADAPALENE
     Indication: Acne
     Dosage: 1 DOSAGE FORM, ONCE A DAY AT NIGHT, DIME SIZE
     Route: 061
     Dates: start: 202302, end: 202302
  2. Proactiv MD Ultra Gentle Cleanser [Concomitant]
     Indication: Acne
     Dosage: 1 DOSAGE FORM, 2 OR MORE TIMES A DAY, DIME SIZE
     Route: 061
     Dates: start: 202302, end: 202302
  3. Proactiv MD Ultra Hydrating Moisturizer [Concomitant]
     Indication: Acne
     Dosage: 1 DOSAGE FORM, 2 OR MORE TIMES A DAY, DIME SIZE
     Route: 061
     Dates: start: 202302, end: 202302

REACTIONS (5)
  - Skin burning sensation [Recovered/Resolved]
  - Erythema [Recovered/Resolved]
  - Dry skin [Recovered/Resolved]
  - Dry eye [Recovered/Resolved]
  - Eye pain [Recovered/Resolved]

NARRATIVE: CASE EVENT DATE: 20230201
